FAERS Safety Report 5391196-6 (Version None)
Quarter: 2007Q3

REPORT INFORMATION
  Report Type: 
  Country: None (occurrence: None)
  Receive Date: 20070717
  Receipt Date: 20070705
  Transmission Date: 20080115
  Serious: Yes (Hospitalization)
  Sender: FDA-Public Use
  Company Number: 235495K07USA

PATIENT
  Age: 25 Year
  Sex: Female

DRUGS (5)
  1. REBIF [Suspect]
     Indication: MULTIPLE SCLEROSIS
  2. ORAL CONTRACEPTIVE (ORAL CONTRACEPTIVE NOS) [Suspect]
  3. TOPAMAX [Concomitant]
  4. CLOZAPINE [Concomitant]
  5. WELLBUTRIN [Concomitant]

REACTIONS (2)
  - PULMONARY THROMBOSIS [None]
  - THROMBOSIS [None]
